FAERS Safety Report 4367560-0 (Version None)
Quarter: 2004Q2

REPORT INFORMATION
  Report Type: 
  Country: None (occurrence: None)
  Receive Date: 20040601
  Receipt Date: 20040524
  Transmission Date: 20050107
  Serious: Yes (Hospitalization)
  Sender: FDA-Public Use
  Company Number: CH-MERCK-0405CHE00031

PATIENT
  Age: 61 Year
  Sex: Male

DRUGS (1)
  1. TRUSOPT [Suspect]
     Indication: GLAUCOMA
     Route: 047
     Dates: end: 20040323

REACTIONS (2)
  - MICTURITION DISORDER [None]
  - MYOCARDIAL INFARCTION [None]
